FAERS Safety Report 8499516-0 (Version None)
Quarter: 2012Q3

REPORT INFORMATION
  Report Type: 
  Country: None (occurrence: None)
  Receive Date: 20120710
  Receipt Date: 20120629
  Transmission Date: 20120928
  Serious: Yes (Hospitalization)
  Sender: FDA-Public Use
  Company Number: JP-SANOFI-AVENTIS-2012SA044139

PATIENT
  Age: 72 Year
  Sex: Male
  Weight: 59.5 kg

DRUGS (12)
  1. FLOMOX [Concomitant]
     Indication: CHEST DISCOMFORT
     Route: 048
     Dates: start: 20120509, end: 20120516
  2. PLETAL [Concomitant]
     Indication: LACUNAR INFARCTION
     Route: 048
     Dates: start: 20111228, end: 20120426
  3. DISOPYRAMIDE PHOSPHATE [Concomitant]
     Indication: ATRIAL FIBRILLATION
     Route: 048
     Dates: start: 20120302, end: 20120526
  4. PLAVIX [Suspect]
     Indication: CEREBRAL INFARCTION
     Route: 048
     Dates: start: 20120515, end: 20120526
  5. TENORMIN [Concomitant]
     Indication: ATRIAL FIBRILLATION
     Route: 048
     Dates: start: 20120302, end: 20120526
  6. PLAVIX [Suspect]
     Route: 048
     Dates: start: 20110422, end: 20120426
  7. PLETAL [Concomitant]
     Route: 048
     Dates: start: 20120515, end: 20120526
  8. VERAPAMIL HCL [Concomitant]
     Indication: ATRIAL FIBRILLATION
     Route: 048
     Dates: start: 20120302, end: 20120526
  9. PLAVIX [Suspect]
     Route: 048
     Dates: start: 20110422, end: 20120426
  10. PLAVIX [Suspect]
     Indication: LACUNAR INFARCTION
     Route: 048
     Dates: start: 20120515, end: 20120526
  11. CETIRIZINE [Concomitant]
     Route: 048
  12. EPINASTINE HYDROCHLORIDE [Concomitant]
     Route: 048

REACTIONS (4)
  - HYPERHIDROSIS [None]
  - EOSINOPHILIC PNEUMONIA [None]
  - PYREXIA [None]
  - HAEMOPTYSIS [None]
